FAERS Safety Report 8385820-3 (Version None)
Quarter: 2012Q2

REPORT INFORMATION
  Report Type: 
  Country: None (occurrence: None)
  Receive Date: 20120525
  Receipt Date: 20120519
  Transmission Date: 20120825
  Serious: Yes (Hospitalization)
  Sender: FDA-Public Use
  Company Number: US-BAYER-2012-017424

PATIENT
  Age: 29 Year
  Sex: Female
  Weight: 69.841 kg

DRUGS (7)
  1. BIRTH CONTROL PILL [Concomitant]
     Dosage: UNK
     Dates: start: 20110110, end: 20110125
  2. GANIRELIX ACETATE INJECTION [Concomitant]
     Dosage: UNK
     Dates: start: 20110209, end: 20110214
  3. BRAVELLE [Concomitant]
     Dosage: UNK
     Dates: start: 20110205, end: 20110213
  4. MIRENA [Concomitant]
  5. MENOPUR [Concomitant]
     Dosage: UNK
     Dates: start: 20110205, end: 20110213
  6. ANAESTHESIA [Concomitant]
     Indication: SEDATIVE THERAPY
     Route: 042
  7. YAZ [Suspect]
     Dosage: UNK
     Dates: start: 20110110, end: 20110125

REACTIONS (4)
  - ANXIETY [None]
  - PAIN [None]
  - PULMONARY EMBOLISM [None]
  - EMOTIONAL DISTRESS [None]
